FAERS Safety Report 9396831 (Version 2)
Quarter: 2014Q1

REPORT INFORMATION
  Report Type: Spontaneous
  Country: CO (occurrence: CO)
  Receive Date: 20130712
  Receipt Date: 20140204
  Transmission Date: 20141002
  Serious: Yes (Death, Hospitalization, Other)
  Sender: FDA-Public Use
  Company Number: CO-AMGEN-COLSP2013048861

PATIENT
  Age: 66 Year
  Sex: Female

DRUGS (6)
  1. ENBREL [Suspect]
     Indication: RHEUMATOID ARTHRITIS
     Dosage: 50 MG, WEEKLY
     Route: 058
     Dates: start: 2012, end: 2013
  2. TRAMADOL HCL [Suspect]
     Indication: PRODUCT USED FOR UNKNOWN INDICATION
     Dosage: UNK
     Route: 065
  3. METHOTREXATE [Concomitant]
     Indication: RHEUMATOID ARTHRITIS
     Dosage: 2.5 MG, WEEKLY
     Route: 048
     Dates: start: 2009
  4. CHLOROQUINE [Concomitant]
     Indication: RHEUMATOID ARTHRITIS
     Dosage: UNK UNK, QD
     Route: 048
     Dates: start: 2012
  5. CALCITRIOL [Concomitant]
     Indication: RHEUMATOID ARTHRITIS
     Dosage: UNK UNK, QD
     Route: 048
     Dates: start: 2012
  6. MELOXICAM [Concomitant]
     Indication: RHEUMATOID ARTHRITIS
     Dosage: UNK
     Route: 048
     Dates: end: 2012

REACTIONS (3)
  - Bone cancer [Fatal]
  - Constipation [Unknown]
  - Hypotension [Unknown]
